FAERS Safety Report 14794663 (Version 2)
Quarter: 2018Q2

REPORT INFORMATION
  Report Type: Spontaneous
  Country: JP (occurrence: JP)
  Receive Date: 20180423
  Receipt Date: 20180619
  Transmission Date: 20180711
  Serious: Yes (Disabling, Other)
  Sender: FDA-Public Use
  Company Number: JP-JNJFOC-20180425626

PATIENT
  Age: 8 Decade
  Sex: Male

DRUGS (2)
  1. BAYASPIRIN [Concomitant]
     Active Substance: ASPIRIN
     Indication: THROMBOTIC CEREBRAL INFARCTION
     Route: 065
     Dates: start: 20180326, end: 20180326
  2. XARELTO [Suspect]
     Active Substance: RIVAROXABAN
     Indication: EMBOLIC CEREBRAL INFARCTION
     Route: 048
     Dates: start: 20180326, end: 20180328

REACTIONS (2)
  - Intracranial tumour haemorrhage [Recovered/Resolved with Sequelae]
  - Brain oedema [Recovering/Resolving]

NARRATIVE: CASE EVENT DATE: 20180328
